FAERS Safety Report 13280812 (Version 1)
Quarter: 2017Q1

REPORT INFORMATION
  Report Type: Spontaneous
  Country: US (occurrence: US)
  Receive Date: 20170301
  Receipt Date: 20170301
  Transmission Date: 20170428
  Serious: No
  Sender: FDA-Public Use
  Company Number: US-INSYS THERAPEUTICS, INC-INS201602-000084

PATIENT
  Sex: Female

DRUGS (5)
  1. HYDROCODONE [Concomitant]
     Active Substance: HYDROCODONE
     Indication: BREAST CANCER
  2. BUPROPION. [Concomitant]
     Active Substance: BUPROPION
     Indication: DEPRESSION
  3. WARFARIN [Concomitant]
     Active Substance: WARFARIN
  4. SUBSYS [Suspect]
     Active Substance: FENTANYL
     Indication: CANCER PAIN
     Route: 060
  5. DULOXETINE. [Concomitant]
     Active Substance: DULOXETINE
     Indication: DEPRESSION

REACTIONS (1)
  - Drug effect incomplete [Not Recovered/Not Resolved]
